FAERS Safety Report 8075284-1 (Version None)
Quarter: 2012Q1

REPORT INFORMATION
  Report Type: 
  Country: None (occurrence: None)
  Receive Date: 20120127
  Receipt Date: 20120119
  Transmission Date: 20120608
  Serious: Yes (Hospitalization)
  Sender: FDA-Public Use
  Company Number: AU-JNJFOC-20120108958

PATIENT
  Sex: Male
  Weight: 62.2 kg

DRUGS (4)
  1. ELIGARD [Concomitant]
     Indication: HORMONE THERAPY
     Route: 065
     Dates: start: 20090420
  2. ABIRATERONE ACETATE [Suspect]
     Route: 048
  3. ABIRATERONE ACETATE [Suspect]
     Indication: PROSTATE CANCER METASTATIC
     Route: 048
     Dates: start: 20111028, end: 20120105
  4. PREDNISONE TAB [Suspect]
     Indication: PROSTATE CANCER METASTATIC
     Route: 065
     Dates: start: 20111027

REACTIONS (2)
  - DIZZINESS [None]
  - HEADACHE [None]
